FAERS Safety Report 4839301-1 (Version None)
Quarter: 2005Q4

REPORT INFORMATION
  Report Type: 
  Country: None (occurrence: None)
  Receive Date: 20051129
  Receipt Date: 20041209
  Transmission Date: 20060501
  Serious: No
  Sender: FDA-Public Use
  Company Number: US-GLAXOSMITHKLINE-A0536780A

PATIENT
  Age: 55 Year
  Sex: Male

DRUGS (10)
  1. WELLBUTRIN SR [Suspect]
     Indication: DEPRESSION
     Dosage: 150MG TWICE PER DAY
     Route: 048
     Dates: start: 20001201
  2. TRAZODONE [Concomitant]
     Indication: DEPRESSION
     Route: 048
     Dates: start: 20000501
  3. AMITRIPTYLINE HCL [Concomitant]
     Indication: INSOMNIA
     Route: 048
     Dates: start: 20000501
  4. PROTONIX [Concomitant]
     Route: 048
     Dates: start: 20030101
  5. CLARINEX [Concomitant]
     Route: 048
     Dates: start: 20010101
  6. SUSTIVA [Concomitant]
     Indication: HIV INFECTION
     Route: 048
     Dates: start: 19991201
  7. COMBIVIR [Concomitant]
     Indication: HIV INFECTION
     Route: 048
     Dates: start: 19991201
  8. VIRACEPT [Concomitant]
     Indication: HIV INFECTION
     Dosage: 125MG TWICE PER DAY
     Route: 048
     Dates: start: 19991201
  9. NEURONTIN [Concomitant]
     Indication: NEUROPATHY PERIPHERAL
     Dosage: 300MG UNKNOWN
     Route: 048
     Dates: start: 20000701
  10. SERZONE [Concomitant]
     Indication: DEPRESSION
     Dosage: 600MG UNKNOWN
     Route: 048
     Dates: start: 20001001

REACTIONS (1)
  - AMPHETAMINES POSITIVE [None]
